FAERS Safety Report 5814863-6 (Version None)
Quarter: 2008Q3

REPORT INFORMATION
  Report Type: 
  Country: None (occurrence: None)
  Receive Date: 20080718
  Receipt Date: 20080715
  Transmission Date: 20090109
  Serious: Yes (Life-Threatening)
  Sender: FDA-Public Use
  Company Number: AU-ABBOTT-08P-008-0462659-00

PATIENT
  Sex: Male
  Weight: 93 kg

DRUGS (13)
  1. SEVORANE LIQUID FOR INHALATION [Suspect]
     Indication: SENSORY DISTURBANCE
  2. CEFALOTIN SODIUM [Suspect]
     Indication: SENSORY DISTURBANCE
  3. FENTANYL [Suspect]
     Indication: SENSORY DISTURBANCE
  4. MIDAZOLAM HCL [Suspect]
     Indication: SENSORY DISTURBANCE
  5. PANCURONIUM BROMIDE [Suspect]
     Indication: SENSORY DISTURBANCE
  6. PROPOFOL [Suspect]
     Indication: SENSORY DISTURBANCE
  7. DILTIAZEM HCL [Concomitant]
     Indication: ESSENTIAL HYPERTENSION
     Dosage: 180 MG DAILY
     Dates: start: 20080207, end: 20080222
  8. ACETYLSALICYLIC ACID SRT [Concomitant]
     Indication: DRUG USE FOR UNKNOWN INDICATION
     Dates: end: 20080212
  9. LITHIUM CARBONATE [Concomitant]
     Indication: AFFECTIVE DISORDER
     Dosage: 500 MG DAILY
  10. OMEPRAZOLE [Concomitant]
     Indication: DRUG USE FOR UNKNOWN INDICATION
     Dosage: 20 MG DAILY
  11. SIMVASTATIN [Concomitant]
     Indication: DRUG USE FOR UNKNOWN INDICATION
     Dosage: 40 MG DAILY
  12. SIMVASTATIN [Concomitant]
     Indication: METABOLIC DISORDER
  13. ALLOPURINOL [Concomitant]
     Indication: GOUT
     Dosage: 300 MG DAILY

REACTIONS (3)
  - ELECTROMECHANICAL DISSOCIATION [None]
  - HYPOTENSION [None]
  - PULSE ABSENT [None]
